FAERS Safety Report 25717609 (Version 4)
Quarter: 2025Q3

REPORT INFORMATION
  Report Type: Spontaneous
  Country: EU (occurrence: EU)
  Receive Date: 20250822
  Receipt Date: 20250916
  Transmission Date: 20251021
  Serious: Yes (Hospitalization)
  Sender: PFIZER
  Company Number: None

PATIENT
  Age: 42 Year
  Sex: Female

DRUGS (3)
  1. LINEZOLID [Interacting]
     Active Substance: LINEZOLID
     Indication: Infection
     Route: 048
     Dates: start: 20250623, end: 20250715
  2. BACTRIM [Interacting]
     Active Substance: SULFAMETHOXAZOLE\TRIMETHOPRIM
     Indication: Infection
     Route: 048
     Dates: start: 20250716
  3. DIGOXIN [Interacting]
     Active Substance: DIGOXIN
     Dosage: 0.13 MG, 1X/DAY
     Route: 048

REACTIONS (3)
  - Drug interaction [Recovered/Resolved]
  - Cardioactive drug level increased [Recovered/Resolved]
  - Gastrointestinal disorder [Recovered/Resolved]

NARRATIVE: CASE EVENT DATE: 20250715
